FAERS Safety Report 18544765 (Version 4)
Quarter: 2020Q4

REPORT INFORMATION
  Report Type: Spontaneous
  Country: IL (occurrence: IL)
  Receive Date: 20201125
  Receipt Date: 20201211
  Transmission Date: 20210114
  Serious: Yes (Hospitalization, Other)
  Sender: FDA-Public Use
  Company Number: IL-PFIZER INC-2020462560

PATIENT
  Age: 77 Year
  Sex: Male
  Weight: 66 kg

DRUGS (7)
  1. GLUCOMINE [METFORMIN HYDROCHLORIDE] [Concomitant]
     Indication: PROPHYLAXIS
     Dosage: UNK
     Dates: start: 2019
  2. PLAVIX [Concomitant]
     Active Substance: CLOPIDOGREL BISULFATE
     Indication: CORONARY ARTERIAL STENT INSERTION
     Dosage: UNK
     Dates: start: 2008
  3. OMNIC [Concomitant]
     Active Substance: TAMSULOSIN HYDROCHLORIDE
     Indication: PROSTATIC DISORDER
     Dosage: UNK
  4. CRESTOR [Concomitant]
     Active Substance: ROSUVASTATIN CALCIUM
     Indication: BLOOD CHOLESTEROL ABNORMAL
     Dosage: UNK
  5. CANDOR [Concomitant]
     Dosage: 8 MG
  6. XELJANZ [Suspect]
     Active Substance: TOFACITINIB CITRATE
     Indication: ARTHRALGIA
     Dosage: ^5MGX 2DAYS AND I TOOK ONE DAY^
     Dates: start: 202011
  7. BONDORMIN [Concomitant]
     Active Substance: BROTIZOLAM
     Indication: SLEEP DISORDER
     Dosage: 1 DF

REACTIONS (9)
  - Dysuria [Recovered/Resolved]
  - Diarrhoea [Recovering/Resolving]
  - Pyrexia [Unknown]
  - Weight decreased [Unknown]
  - Off label use [Unknown]
  - Seizure [Unknown]
  - Feeling abnormal [Unknown]
  - General physical health deterioration [Unknown]
  - Urinary tract infection [Recovered/Resolved]

NARRATIVE: CASE EVENT DATE: 202011
